FAERS Safety Report 19389432 (Version 5)
Quarter: 2022Q1

REPORT INFORMATION
  Report Type: Report from Study
  Country: None (occurrence: RU)
  Receive Date: 20210608
  Receipt Date: 20211214
  Transmission Date: 20220424
  Serious: No
  Sender: FDA-Public Use
  Company Number: RU-Celltrion, Inc.-2112475

PATIENT
  Age: 19 Year
  Sex: Female

DRUGS (1)
  1. TRUXIMA [Suspect]
     Active Substance: RITUXIMAB-ABBS

REACTIONS (1)
  - Anaphylactic reaction [None]
